FAERS Safety Report 14224053 (Version 1)
Quarter: 2017Q4

REPORT INFORMATION
  Report Type: Spontaneous
  Country: US (occurrence: US)
  Receive Date: 20171124
  Receipt Date: 20171124
  Transmission Date: 20180321
  Serious: Yes (Hospitalization)
  Sender: FDA-Public Use
  Company Number: None

PATIENT
  Age: 68 Year
  Sex: Female

DRUGS (1)
  1. COPAXONE [Suspect]
     Active Substance: GLATIRAMER ACETATE
     Indication: MULTIPLE SCLEROSIS
     Dosage: ?          OTHER FREQUENCY:3 TIMES A WEEK;?
     Route: 058

REACTIONS (6)
  - Fall [None]
  - Cervical vertebral fracture [None]
  - Tinnitus [None]
  - Drug ineffective [None]
  - Drug dose omission [None]
  - Visual impairment [None]

NARRATIVE: CASE EVENT DATE: 20170130
